FAERS Safety Report 21223773 (Version 1)
Quarter: 2022Q3

REPORT INFORMATION
  Report Type: Spontaneous
  Country: ES (occurrence: ES)
  Receive Date: 20220817
  Receipt Date: 20220817
  Transmission Date: 20221026
  Serious: Yes (Death)
  Sender: FDA-Public Use
  Company Number: ES-Accord-269659

PATIENT
  Age: 51 Year
  Sex: Female
  Weight: 50 kg

DRUGS (16)
  1. CARBOPLATIN [Suspect]
     Active Substance: CARBOPLATIN
     Indication: Product used for unknown indication
     Dosage: 5AUC, 1Q3W?PHARMACEUTICAL DOSE FORM: INFUSION
     Dates: start: 20220117, end: 20220207
  2. CARBOPLATIN [Suspect]
     Active Substance: CARBOPLATIN
     Dosage: 4AUC, 1Q3W?PHARMACEUTICAL DOSE FORM: INFUSION
     Dates: start: 20220307, end: 20220513
  3. FLUOROURACIL [Suspect]
     Active Substance: FLUOROURACIL
     Indication: Product used for unknown indication
     Dosage: QD?PHARMACEUTICAL DOSE FORM: INFUSION
     Dates: start: 20220328, end: 20220401
  4. FLUOROURACIL [Suspect]
     Active Substance: FLUOROURACIL
     Dosage: 1Q3W?PHARMACEUTICAL DOSE FORM: INFUSION
     Dates: start: 20220516, end: 20220521
  5. FLUOROURACIL [Suspect]
     Active Substance: FLUOROURACIL
     Dosage: QD?PHARMACEUTICAL DOSE FORM: INFUSION
     Dates: start: 20220307, end: 20220311
  6. FLUOROURACIL [Suspect]
     Active Substance: FLUOROURACIL
     Dosage: QD?PHARMACEUTICAL DOSE FORM: INFUSION
     Dates: start: 20220117, end: 20220121
  7. FLUOROURACIL [Suspect]
     Active Substance: FLUOROURACIL
     Dosage: QD?PHARMACEUTICAL DOSE FORM: INFUSION
     Dates: start: 20220207, end: 20220210
  8. FLUOROURACIL [Suspect]
     Active Substance: FLUOROURACIL
     Dosage: QD?PHARMACEUTICAL DOSE FORM: INFUSION
     Dates: start: 20220419, end: 20220423
  9. PEMBROLIZUMAB [Suspect]
     Active Substance: PEMBROLIZUMAB
     Indication: Product used for unknown indication
     Dosage: 1Q3W?PHARMACEUTICAL DOSE FORM: INFUSION
     Dates: start: 20220117, end: 20220516
  10. ONDANSETRON [Concomitant]
     Active Substance: ONDANSETRON
     Indication: Product used for unknown indication
     Dates: start: 20220119
  11. ZOLPIDEM [Concomitant]
     Active Substance: ZOLPIDEM TARTRATE
     Indication: Product used for unknown indication
     Dates: start: 20211201
  12. PROPRANOLOL HYDROCHLORIDE [Concomitant]
     Active Substance: PROPRANOLOL HYDROCHLORIDE
     Indication: Product used for unknown indication
     Dates: start: 20220317
  13. DIAZEPAM [Concomitant]
     Active Substance: DIAZEPAM
     Indication: Product used for unknown indication
     Dates: start: 20210401
  14. ACETAMINOPHEN [Concomitant]
     Active Substance: ACETAMINOPHEN
     Indication: Product used for unknown indication
     Dates: start: 20211201
  15. MYCOSTATIN [Concomitant]
     Active Substance: NYSTATIN
     Indication: Product used for unknown indication
     Dates: start: 20220124
  16. LEVOTHYROXINE SODIUM [Concomitant]
     Active Substance: LEVOTHYROXINE SODIUM
     Indication: Product used for unknown indication
     Dates: start: 20220414

REACTIONS (2)
  - Respiratory tract infection [Fatal]
  - Off label use [Unknown]

NARRATIVE: CASE EVENT DATE: 20220616
